FAERS Safety Report 12981196 (Version 1)
Quarter: 2016Q4

REPORT INFORMATION
  Report Type: Spontaneous
  Country: US (occurrence: US)
  Receive Date: 20161129
  Receipt Date: 20161129
  Transmission Date: 20170207
  Serious: No
  Sender: FDA-Public Use
  Company Number: US-AUROBINDO-AUR-APU-2016-11548

PATIENT
  Sex: Female
  Weight: 82.86 kg

DRUGS (1)
  1. PHENTERMINE HYDROCHLORIDE TABLETS USP, 37.5 MG [Suspect]
     Active Substance: PHENTERMINE HYDROCHLORIDE
     Indication: WEIGHT CONTROL
     Dosage: 37.5 MG, ONCE A DAY
     Route: 065
     Dates: start: 20160901, end: 20160905

REACTIONS (6)
  - Malaise [Unknown]
  - Product substitution issue [None]
  - Hyperhidrosis [Unknown]
  - Hyperphagia [Unknown]
  - Feeling hot [Unknown]
  - Feeling abnormal [Unknown]
